FAERS Safety Report 9563781 (Version 3)
Quarter: 2013Q4

REPORT INFORMATION
  Report Type: Spontaneous
  Country: US (occurrence: None)
  Receive Date: 20130926
  Receipt Date: 20131121
  Transmission Date: 20140711
  Serious: Yes (Other)
  Sender: FDA-Public Use
  Company Number: ADR-2013-01697

PATIENT
  Age: 37 Year
  Sex: Male

DRUGS (1)
  1. LIORESAL INTRATHECAL [Suspect]
     Indication: MUSCLE SPASTICITY
     Dates: start: 200811

REACTIONS (11)
  - Dizziness [None]
  - Muscle spasticity [None]
  - Feeling abnormal [None]
  - Nausea [None]
  - Vomiting [None]
  - Muscle tightness [None]
  - Bladder dysfunction [None]
  - Pruritus [None]
  - No therapeutic response [None]
  - Pain [None]
  - Condition aggravated [None]
